FAERS Safety Report 6843382-3 (Version None)
Quarter: 2010Q3

REPORT INFORMATION
  Report Type: 
  Country: None (occurrence: None)
  Receive Date: 20100709
  Receipt Date: 20100624
  Transmission Date: 20110219
  Serious: Yes (Death)
  Sender: FDA-Public Use
  Company Number: 2010000914

PATIENT
  Age: 62 Year
  Sex: Male
  Weight: 48 kg

DRUGS (6)
  1. ERLOTINIB HYDROCHLORIDE [Suspect]
     Indication: LUNG ADENOCARCINOMA
     Dosage: 150 MG, QD, ORAL
     Route: 048
     Dates: start: 20090626, end: 20090730
  2. CANDESARTAN CILEXETIL [Concomitant]
  3. PLETAL [Concomitant]
  4. ALPROSTADIL [Concomitant]
  5. FENTANYL-100 [Concomitant]
  6. LOXONIN (LOXOPROFEN SODIUM) [Concomitant]

REACTIONS (6)
  - ANAEMIA [None]
  - CONDITION AGGRAVATED [None]
  - HEPATIC FUNCTION ABNORMAL [None]
  - LUNG ADENOCARCINOMA [None]
  - MALIGNANT NEOPLASM PROGRESSION [None]
  - RASH [None]
